FAERS Safety Report 8513176-1 (Version None)
Quarter: 2012Q3

REPORT INFORMATION
  Report Type: 
  Country: None (occurrence: None)
  Receive Date: 20120716
  Receipt Date: 20120706
  Transmission Date: 20120928
  Serious: Yes (Death, Hospitalization)
  Sender: FDA-Public Use
  Company Number: AT-PFIZER INC-2012163143

PATIENT
  Age: 59 Year
  Sex: Male
  Weight: 71.6 kg

DRUGS (9)
  1. PASPERTIN [Concomitant]
     Indication: PROPHYLAXIS OF NAUSEA AND VOMITING
     Dosage: UNK
     Dates: start: 20110101
  2. NEXIUM [Concomitant]
     Indication: PROPHYLAXIS
     Dosage: UNK
     Dates: start: 20111201
  3. MOLAXOLE [Concomitant]
     Indication: CONSTIPATION PROPHYLAXIS
     Dosage: UNK
     Dates: start: 20110101
  4. FLUOROURACIL [Suspect]
     Dosage: 2400 MG/M2, ON DAYS ONE AND TWO OF EACH 14 DAY CYCLE
     Route: 042
     Dates: start: 20120425, end: 20120530
  5. BLINDED THERAPY [Suspect]
     Indication: COLORECTAL CANCER METASTATIC
     Dosage: UNK
     Dates: start: 20120425, end: 20120524
  6. HYDAL [Concomitant]
     Indication: ABDOMINAL PAIN
     Dosage: UNK
     Dates: start: 20120423
  7. IRINOTECAN HCL [Suspect]
     Indication: COLORECTAL CANCER METASTATIC
     Dosage: 180 MG/M2, ON DAY ONE OF EACH 14 DAY CYCLE
     Route: 042
     Dates: start: 20120425, end: 20120530
  8. LEUCOVORIN CALCIUM [Suspect]
     Indication: COLORECTAL CANCER METASTATIC
     Dosage: 400 MG/M2, ON DAY ONE OF EACH 14 DAY CYCLE
     Route: 042
     Dates: start: 20120425, end: 20120530
  9. FLUOROURACIL [Suspect]
     Indication: COLORECTAL CANCER METASTATIC
     Dosage: 400 MG/M2, ON DAY ONE OF EACH 14 DAY CYCLE
     Route: 042
     Dates: start: 20120425, end: 20120530

REACTIONS (5)
  - DIARRHOEA [None]
  - ANAEMIA [None]
  - SEPSIS [None]
  - PNEUMONIA [None]
  - FATIGUE [None]
